FAERS Safety Report 9550122 (Version 2)
Quarter: 2013Q3

REPORT INFORMATION
  Report Type: Spontaneous
  Country: AU (occurrence: AU)
  Receive Date: 20130924
  Receipt Date: 20130924
  Transmission Date: 20140515
  Serious: Yes (Death)
  Sender: FDA-Public Use
  Company Number: AU-CELGENEUS-008-20785-13090874

PATIENT
  Sex: Female

DRUGS (22)
  1. THALOMID [Suspect]
     Indication: PLASMA CELL MYELOMA
     Dosage: 100 MILLIGRAM
     Route: 048
     Dates: start: 20130709
  2. ALEPAM [Concomitant]
     Indication: ANXIETY
     Route: 065
  3. APO-TEMAZEPAM [Concomitant]
     Indication: PRODUCT USED FOR UNKNOWN INDICATION
     Route: 065
  4. CLEXANE [Concomitant]
     Indication: THROMBOSIS PROPHYLAXIS
     Dosage: 80MG/0.8ML
     Route: 065
  5. COVERSYL [Concomitant]
     Indication: HYPERTENSION
     Dosage: 5MG/1.25MG
     Route: 065
  6. ENDONE [Concomitant]
     Indication: PAIN
     Dosage: 10 MILLIGRAM
     Route: 065
  7. FGF [Concomitant]
     Indication: ANAEMIA
     Dosage: 1 TABLET
     Route: 065
  8. FRUSEMIDE [Concomitant]
     Indication: OEDEMA PERIPHERAL
     Dosage: 20 MILLIGRAM
     Route: 048
  9. ASPIRINE [Concomitant]
     Indication: PRODUCT USED FOR UNKNOWN INDICATION
     Route: 065
  10. MOBIC [Concomitant]
     Indication: PAIN
     Dosage: 15 MILLIGRAM
     Route: 065
  11. MORPHINE SULFATE [Concomitant]
     Indication: PAIN
     Dosage: 10MG/1ML
     Route: 065
  12. MORPHINE SULFATE [Concomitant]
     Dosage: 30MG/1ML
     Route: 065
  13. NORSPAN [Concomitant]
     Indication: PAIN
     Route: 062
  14. OSTELIN VITAMIN D + CALCIUM [Concomitant]
     Indication: PRODUCT USED FOR UNKNOWN INDICATION
     Route: 065
  15. OXYCONTIN [Concomitant]
     Indication: PAIN
     Dosage: 10 MILLIGRAM
     Route: 065
  16. PANADOL OSTEO [Concomitant]
     Indication: PAIN
     Dosage: 3990 MILLIGRAM
     Route: 065
  17. PAXAM [Concomitant]
     Indication: ANXIETY
     Route: 065
  18. RIVOTRIL [Concomitant]
     Indication: ANXIETY
     Dosage: 1MG/1ML
     Route: 065
  19. SEREPAX [Concomitant]
     Indication: ANXIETY
     Route: 065
  20. SEREPAX [Concomitant]
     Dosage: 0.5-1 MDU
     Route: 065
  21. TARGIN [Concomitant]
     Indication: PAIN
     Dosage: 10/5MG
     Route: 065
  22. TARGIN [Concomitant]
     Dosage: 40/20
     Route: 065

REACTIONS (1)
  - Plasma cell myeloma [Fatal]
